FAERS Safety Report 5479910-2 (Version None)
Quarter: 2007Q4

REPORT INFORMATION
  Report Type: 
  Country: None (occurrence: None)
  Receive Date: 20071008
  Receipt Date: 20070921
  Transmission Date: 20080405
  Serious: No
  Sender: FDA-Public Use
  Company Number: US-BOEHRINGER INGELHEIM PHARMACEUTICALS, INC.-2007-BP-21596BP

PATIENT
  Sex: Male

DRUGS (4)
  1. MIRAPEX [Suspect]
     Indication: RESTLESS LEGS SYNDROME
     Route: 048
     Dates: start: 20070801
  2. DIOVAN [Concomitant]
     Indication: HYPERTENSION
  3. ZETIA [Concomitant]
     Indication: BLOOD CHOLESTEROL INCREASED
  4. ZOLOFT [Concomitant]
     Indication: SLEEP APNOEA SYNDROME

REACTIONS (4)
  - DIPLOPIA [None]
  - GAIT DISTURBANCE [None]
  - HYPOTENSION [None]
  - VISUAL DISTURBANCE [None]
